FAERS Safety Report 23820193 (Version 1)
Quarter: 2024Q2

REPORT INFORMATION
  Report Type: Spontaneous
  Country: US (occurrence: US)
  Receive Date: 20240506
  Receipt Date: 20240506
  Transmission Date: 20240716
  Serious: No
  Sender: FDA-Public Use
  Company Number: US-SA-SAC20240430000710

PATIENT
  Age: 58 Year
  Sex: Male

DRUGS (8)
  1. KEVZARA [Suspect]
     Active Substance: SARILUMAB
     Indication: Rheumatoid arthritis
     Dosage: 200 MG, QOW
     Route: 058
     Dates: start: 20240416
  2. CETIRIZINE [Concomitant]
     Active Substance: CETIRIZINE HYDROCHLORIDE
  3. DICLOFENAC POTASSIUM [Concomitant]
     Active Substance: DICLOFENAC POTASSIUM
  4. DICLOFENAC SODIUM [Concomitant]
     Active Substance: DICLOFENAC\DICLOFENAC SODIUM
  5. GABAPENTIN [Concomitant]
     Active Substance: GABAPENTIN
  6. LIDOCAINE [Concomitant]
     Active Substance: LIDOCAINE
  7. LOPRESSOR [Concomitant]
     Active Substance: METOPROLOL TARTRATE
  8. PREDNISONE [Concomitant]
     Active Substance: PREDNISONE

REACTIONS (6)
  - Chest discomfort [Recovered/Resolved]
  - Tachycardia [Recovered/Resolved]
  - Headache [Not Recovered/Not Resolved]
  - Nausea [Not Recovered/Not Resolved]
  - Tendonitis [Not Recovered/Not Resolved]
  - Pain in extremity [Not Recovered/Not Resolved]

NARRATIVE: CASE EVENT DATE: 20240417
